FAERS Safety Report 11276079 (Version 1)
Quarter: 2015Q3

REPORT INFORMATION
  Report Type: Spontaneous
  Country: US (occurrence: US)
  Receive Date: 20150716
  Receipt Date: 20150716
  Transmission Date: 20151125
  Serious: Yes (Life-Threatening)
  Sender: FDA-Public Use
  Company Number: PHEH2015US011751

PATIENT
  Sex: Male

DRUGS (1)
  1. TEGRETOL [Suspect]
     Active Substance: CARBAMAZEPINE
     Indication: DYSTHYMIC DISORDER
     Dosage: UNK
     Route: 065

REACTIONS (2)
  - Off label use [Unknown]
  - Suicidal ideation [Unknown]
